FAERS Safety Report 23033744 (Version 1)
Quarter: 2023Q4

REPORT INFORMATION
  Report Type: Spontaneous
  Country: US (occurrence: US)
  Receive Date: 20231005
  Receipt Date: 20231005
  Transmission Date: 20240109
  Serious: Yes (Other)
  Sender: FDA-Public Use
  Company Number: US-PFIZER INC-08H-163-0314066-00

PATIENT
  Age: 76 Year
  Sex: Female

DRUGS (13)
  1. FENTANYL CITRATE [Suspect]
     Active Substance: FENTANYL CITRATE
     Indication: Cancer pain
     Dosage: 25 UG (FREQ: 25UG/HR,WITH 25 UG DEMAND DOSES Q 15MIN)
     Route: 042
  2. FENTANYL CITRATE [Suspect]
     Active Substance: FENTANYL CITRATE
     Dosage: 100 UG, ONCE IV BOLUS
     Route: 042
  3. FENTANYL CITRATE [Suspect]
     Active Substance: FENTANYL CITRATE
     Dosage: 100 UG, ONCE IV BOLUS
     Route: 042
  4. FENTANYL CITRATE [Suspect]
     Active Substance: FENTANYL CITRATE
     Dosage: UNK
     Route: 042
  5. FENTANYL CITRATE [Suspect]
     Active Substance: FENTANYL CITRATE
     Dosage: 60 UG/HOURS WITH 40 UG DOSE BOLUS Q 10 MIN
     Route: 042
  6. FENTANYL [Suspect]
     Active Substance: FENTANYL
     Indication: Cancer pain
     Dosage: 100 UG/ HOUR
     Route: 062
  7. FENTANYL [Suspect]
     Active Substance: FENTANYL
     Dosage: 200 UG/HOUR
     Route: 062
  8. FENTANYL [Suspect]
     Active Substance: FENTANYL
     Dosage: 100 UG/HOUR
     Route: 062
  9. GABAPENTIN [Concomitant]
     Active Substance: GABAPENTIN
     Indication: Cancer pain
     Dosage: 300 MG, 3X/DAY
  10. OLANZAPINE [Concomitant]
     Active Substance: OLANZAPINE
     Dosage: 5 MG
  11. ACETAMINOPHEN [Concomitant]
     Active Substance: ACETAMINOPHEN
     Indication: Cancer pain
     Dosage: 650 MG, 4 IN 1 D
  12. KETOROLAC [Concomitant]
     Active Substance: KETOROLAC TROMETHAMINE
     Indication: Neoplasm malignant
     Dosage: 30 MG
     Route: 042
  13. HALOPERIDOL [Concomitant]
     Active Substance: HALOPERIDOL
     Indication: Cancer pain
     Dosage: 2 MG
     Route: 042

REACTIONS (2)
  - Neurotoxicity [Recovered/Resolved]
  - Paradoxical pain [Recovered/Resolved]
